FAERS Safety Report 8231610-1 (Version None)
Quarter: 2012Q1

REPORT INFORMATION
  Report Type: 
  Country: None (occurrence: None)
  Receive Date: 20120323
  Receipt Date: 20120313
  Transmission Date: 20120608
  Serious: Yes (Other)
  Sender: FDA-Public Use
  Company Number: US-ELI_LILLY_AND_COMPANY-US201110007915

PATIENT
  Age: 64 Year
  Sex: Female

DRUGS (9)
  1. FORTEO [Suspect]
     Dosage: 20 UG, QD
  2. LEVETIRACETAM [Concomitant]
     Dosage: UNK, UNKNOWN
  3. DIOVAN [Concomitant]
     Dosage: UNK, UNKNOWN
  4. ASPIRIN [Concomitant]
     Dosage: 81 MG, QD
  5. FORTEO [Suspect]
     Dosage: 20 UG, QD
  6. LOVASTATIN [Concomitant]
     Dosage: UNK, UNKNOWN
  7. CARVEDILOL [Concomitant]
     Dosage: UNK, UNKNOWN
  8. FORTEO [Suspect]
     Indication: OSTEOPOROSIS
     Dosage: 20 UG, QD
     Route: 065
     Dates: start: 20110822
  9. FUROSEMIDE [Concomitant]
     Dosage: UNK, UNKNOWN

REACTIONS (7)
  - MUSCLE SPASMS [None]
  - MYELODYSPLASTIC SYNDROME [None]
  - DRUG DOSE OMISSION [None]
  - BONE PAIN [None]
  - TRIGGER FINGER [None]
  - SPINAL OPERATION [None]
  - SKIN INJURY [None]
